FAERS Safety Report 5499897-6 (Version None)
Quarter: 2007Q4

REPORT INFORMATION
  Report Type: 
  Country: None (occurrence: None)
  Receive Date: 20071026
  Receipt Date: 20071015
  Transmission Date: 20080405
  Serious: Yes (Hospitalization, Other)
  Sender: FDA-Public Use
  Company Number: US-PFIZER INC-2007087418

PATIENT
  Sex: Female
  Weight: 74.545 kg

DRUGS (2)
  1. CHANTIX [Suspect]
     Indication: EX-SMOKER
     Route: 048
     Dates: start: 20070901, end: 20070901
  2. PREDNISONE [Suspect]
     Indication: ASTHMA

REACTIONS (2)
  - ADVERSE DRUG REACTION [None]
  - INFECTION [None]
